FAERS Safety Report 21297052 (Version 1)
Quarter: 2022Q3

REPORT INFORMATION
  Report Type: Spontaneous
  Country: KR (occurrence: KR)
  Receive Date: 20220906
  Receipt Date: 20220906
  Transmission Date: 20221027
  Serious: Yes (Other)
  Sender: FDA-Public Use
  Company Number: KR-002147023-NVSC2022KR195875

PATIENT
  Age: 74 Year
  Sex: Male

DRUGS (3)
  1. LUCENTIS [Suspect]
     Active Substance: RANIBIZUMAB
     Indication: Age-related macular degeneration
     Dosage: 0.05 ML, PRN (MORE THAN ONE MONTH)
     Route: 050
     Dates: start: 20200803, end: 20210730
  2. BEOVU [Suspect]
     Active Substance: BROLUCIZUMAB-DBLL
     Indication: Age-related macular degeneration
     Dosage: 0.05 ML (MORE THAN ONE MONTH)
     Route: 065
     Dates: start: 20210927
  3. BEOVU [Suspect]
     Active Substance: BROLUCIZUMAB-DBLL
     Dosage: UNK (SECOND INJECTION)
     Route: 065
     Dates: start: 20211025

REACTIONS (4)
  - Age-related macular degeneration [Unknown]
  - Disease progression [Unknown]
  - Subretinal fluid [Recovered/Resolved]
  - Visual impairment [Recovering/Resolving]

NARRATIVE: CASE EVENT DATE: 20201026
